FAERS Safety Report 14244057 (Version 2)
Quarter: 2017Q4

REPORT INFORMATION
  Report Type: Spontaneous
  Country: KR (occurrence: KR)
  Receive Date: 20171201
  Receipt Date: 20171215
  Transmission Date: 20180321
  Serious: Yes (Hospitalization, Other)
  Sender: FDA-Public Use
  Company Number: KR-GILEAD-2017-0307385

PATIENT
  Age: 68 Year
  Sex: Female

DRUGS (6)
  1. CNU [Concomitant]
     Dosage: 250 MG, UNK
     Route: 048
  2. CENTRUM SILVER                     /02363801/ [Concomitant]
     Active Substance: MINERALS\VITAMINS
  3. UFT [Concomitant]
     Active Substance: TEGAFUR\URACIL
     Dosage: 1 DF, UNK
     Route: 048
  4. INSULIN [Concomitant]
     Active Substance: INSULIN NOS
  5. TENOFOVIR DISOPROXIL FUMARATE. [Suspect]
     Active Substance: TENOFOVIR DISOPROXIL FUMARATE
     Indication: HEPATITIS B
     Dosage: UNK
     Route: 065
  6. TRAJENTA DUO [Concomitant]
     Active Substance: LINAGLIPTIN\METFORMIN HYDROCHLORIDE

REACTIONS (1)
  - Drug-induced liver injury [Recovering/Resolving]
